FAERS Safety Report 5924122-9 (Version None)
Quarter: 2008Q3

REPORT INFORMATION
  Report Type: 
  Country: None (occurrence: None)
  Receive Date: 20080909
  Receipt Date: 20071220
  Transmission Date: 20090109
  Serious: Yes (Hospitalization)
  Sender: FDA-Public Use
  Company Number: 163-20785-07121232

PATIENT
  Age: 61 Year
  Sex: Female
  Weight: 67 kg

DRUGS (20)
  1. THALOMID [Suspect]
     Indication: MULTIPLE MYELOMA
     Dosage: 200 MG, ORAL
     Route: 048
     Dates: start: 20060509, end: 20070821
  2. DEXAMETHASONE TAB [Suspect]
     Indication: MULTIPLE MYELOMA
     Dosage: 40 MG
     Dates: start: 20060509, end: 20070824
  3. VELCADE [Suspect]
     Indication: MULTIPLE MYELOMA
     Dosage: 1 MG/M2
     Dates: start: 20060506, end: 20070821
  4. FOLIC ACID [Concomitant]
  5. K-TABS (POTASSIUM) [Concomitant]
  6. CELEXA [Concomitant]
  7. LEVOTHYROXINE SODIUM (LEVOTHYROXINE SODUIM) [Concomitant]
  8. LIPITOR [Concomitant]
  9. COUMADIN [Concomitant]
  10. ACYCLOVIR [Concomitant]
  11. CLONAZAPAM (CLONAZEPAM) [Concomitant]
  12. MULTIVITAMIN [Concomitant]
  13. OXYCONTIN [Concomitant]
  14. VENTOLIN [Concomitant]
  15. SURFAK (DOCUSATE CALCIUM) [Concomitant]
  16. ZYRTEC [Concomitant]
  17. GUAIFENESIN [Concomitant]
  18. HYDROCODONE (HYDROCODONE) [Concomitant]
  19. OXYCODONE HCL [Concomitant]
  20. CEFZIL [Concomitant]

REACTIONS (1)
  - PNEUMONIA [None]
